FAERS Safety Report 4830057-5 (Version None)
Quarter: 2005Q4

REPORT INFORMATION
  Report Type: 
  Country: None (occurrence: None)
  Receive Date: 20051117
  Receipt Date: 20051103
  Transmission Date: 20060501
  Serious: Yes (Death)
  Sender: FDA-Public Use
  Company Number: GB-JNJFOC-20050600737

PATIENT
  Age: 43 Year
  Sex: Male
  Weight: 57 kg

DRUGS (11)
  1. REOPRO [Suspect]
     Indication: ACUTE MYOCARDIAL INFARCTION
     Route: 042
  2. CLOPIDOGREL BISULFATE [Concomitant]
     Dosage: 300 MG STAT 75 MG DAILY, ORAL
     Route: 048
  3. ASPIRIN [Concomitant]
     Indication: MYOCARDIAL INFARCTION
     Route: 048
  4. ENOXAPARIN SODIUM [Concomitant]
     Indication: MYOCARDIAL INFARCTION
     Dosage: 40 MG BID TO 40 MG DAILY
     Route: 058
  5. HEPARIN [Concomitant]
     Route: 042
  6. HEPARIN [Concomitant]
     Route: 042
  7. ATORVASTATIN CALCIUM [Concomitant]
  8. CIPRALEX [Concomitant]
  9. BISOPROLOL [Concomitant]
  10. NICORETTE [Concomitant]
     Dosage: 1 PATCH DAILY
     Route: 062
  11. RAMIPRIL [Concomitant]

REACTIONS (3)
  - CEREBRAL HAEMORRHAGE [None]
  - HYDROCEPHALUS [None]
  - THROMBOCYTOPENIA [None]
